FAERS Safety Report 6418133-7 (Version None)
Quarter: 2009Q4

REPORT INFORMATION
  Report Type: 
  Country: None (occurrence: None)
  Receive Date: 20091028
  Receipt Date: 20091016
  Transmission Date: 20100525
  Serious: Yes (Life-Threatening, Hospitalization, Other)
  Sender: FDA-Public Use
  Company Number: US-PFIZER INC-2009285573

PATIENT
  Sex: Male
  Weight: 78.912 kg

DRUGS (8)
  1. DILANTIN-125 [Suspect]
     Indication: GRAND MAL CONVULSION
     Dosage: 100 MG IN THE MORNING AND 200 MG IN THE EVENING
     Dates: start: 19620101
  2. CELONTIN [Suspect]
     Dosage: UNK
  3. PHENYTOIN [Suspect]
     Dosage: UNK
  4. NAVANE [Concomitant]
     Dosage: 60 MG, UNK
     Dates: start: 19900101
  5. SYNTHROID [Concomitant]
     Indication: THYROID DISORDER
     Dosage: 0.175 MG, UNK
     Dates: start: 19900101
  6. PHENOBARBITAL [Concomitant]
     Dosage: UNK
  7. MEBARAL [Concomitant]
     Dosage: ^SMALL DOSES^
  8. PRIMIDONE [Concomitant]

REACTIONS (19)
  - ACCIDENT AT WORK [None]
  - ANTICONVULSANT DRUG LEVEL DECREASED [None]
  - ASTHENIA [None]
  - BACK INJURY [None]
  - COMA [None]
  - CONVULSION [None]
  - DRUG TOXICITY [None]
  - DYSURIA [None]
  - FALL [None]
  - HAEMATURIA [None]
  - HEADACHE [None]
  - HIP FRACTURE [None]
  - LOWER LIMB FRACTURE [None]
  - PARALYSIS [None]
  - POST-TRAUMATIC STRESS DISORDER [None]
  - RENAL DISORDER [None]
  - SCROTAL SWELLING [None]
  - STATUS EPILEPTICUS [None]
  - URETHRAL MEATUS STENOSIS [None]
